FAERS Safety Report 5676256-4 (Version None)
Quarter: 2008Q1

REPORT INFORMATION
  Report Type: 
  Country: None (occurrence: None)
  Receive Date: 20080321
  Receipt Date: 20080311
  Transmission Date: 20080703
  Serious: Yes (Hospitalization, Other)
  Sender: FDA-Public Use
  Company Number: US-PFIZER INC-2008003723

PATIENT
  Sex: Male
  Weight: 79.4 kg

DRUGS (11)
  1. CHANTIX [Suspect]
     Indication: SMOKING CESSATION THERAPY
     Route: 048
     Dates: start: 20071217, end: 20071221
  2. CHANTIX [Suspect]
     Indication: EMPHYSEMA
  3. ALBUTEROL [Concomitant]
     Indication: ASTHMA
     Route: 055
  4. CYMBALTA [Concomitant]
     Dosage: TEXT:60-FREQ:DAILY
  5. LOTREL [Concomitant]
     Dosage: TEXT:10/20-FREQ:ONCE DAILY
     Route: 048
  6. MONTELUKAST SODIUM [Concomitant]
     Indication: ASTHMA
     Route: 048
  7. SPIRIVA [Concomitant]
     Indication: ASTHMA
     Dosage: FREQ:DAILY
     Route: 055
  8. ADVAIR DISKUS 100/50 [Concomitant]
     Indication: ASTHMA
     Dosage: TEXT:250/50-FREQ:BID
     Route: 055
  9. DALMANE [Concomitant]
  10. NEURONTIN [Concomitant]
     Route: 048
  11. OXYCODONE HCL [Concomitant]
     Dosage: TEXT:120-FREQ:BID
     Route: 048

REACTIONS (14)
  - ASTHENIA [None]
  - BALANCE DISORDER [None]
  - BLOOD GLUCOSE INCREASED [None]
  - BLOOD IRON DECREASED [None]
  - BLOOD PHOSPHORUS INCREASED [None]
  - BLOOD TESTOSTERONE DECREASED [None]
  - CONVULSION [None]
  - DYSARTHRIA [None]
  - FALL [None]
  - GRIP STRENGTH DECREASED [None]
  - HALLUCINATION [None]
  - INCOHERENT [None]
  - MENTAL IMPAIRMENT [None]
  - PERSONALITY CHANGE [None]
